FAERS Safety Report 9267999 (Version 1)
Quarter: 2013Q2

REPORT INFORMATION
  Report Type: Spontaneous
  Country: US (occurrence: US)
  Receive Date: 20130502
  Receipt Date: 20130502
  Transmission Date: 20140414
  Serious: Yes (Hospitalization)
  Sender: FDA-Public Use
  Company Number: US-ALEXION PHARMACEUTICALS INC.-A201201451

PATIENT
  Age: 51 Year
  Sex: Male
  Weight: 92 kg

DRUGS (13)
  1. SOLIRIS 300MG [Suspect]
     Indication: PAROXYSMAL NOCTURNAL HAEMOGLOBINURIA
     Dosage: UNK
     Route: 042
     Dates: start: 2005
  2. SOLIRIS 300MG [Suspect]
     Dosage: 900 MG, Q2W
     Route: 042
     Dates: start: 200509
  3. COUMADIN [Concomitant]
     Indication: PROPHYLAXIS
     Dosage: UNK, QD DEPENDING ON INR
     Route: 048
  4. PAXIL [Concomitant]
     Dosage: 20 MG, UNK
     Route: 048
  5. FOLIC ACID [Concomitant]
  6. DOXYCYCLINE [Concomitant]
     Dosage: 100 MG, BID
     Route: 048
  7. PREDNISONE [Concomitant]
     Indication: PAROXYSMAL NOCTURNAL HAEMOGLOBINURIA
     Dosage: 30 MG, QD
     Route: 048
  8. PREDNISONE [Concomitant]
     Dosage: 20 MG, QD X 3 DAYS
     Route: 048
  9. PREDNISONE [Concomitant]
     Dosage: 10 MG, QD X 3 DAYS
     Route: 048
  10. VITAMIN B COMPLEX [Concomitant]
     Dosage: UNK
  11. MULTIVITAMIN [Concomitant]
     Dosage: UNK
  12. BENADRYL [Concomitant]
     Dosage: UNK
  13. TYLENOL [Concomitant]
     Dosage: UNK, PRN

REACTIONS (4)
  - Viral infection [Recovered/Resolved]
  - Blood bilirubin increased [Recovering/Resolving]
  - Blood lactate dehydrogenase increased [Recovering/Resolving]
  - Haemoglobin decreased [Not Recovered/Not Resolved]
